FAERS Safety Report 7752242-5 (Version None)
Quarter: 2011Q3

REPORT INFORMATION
  Report Type: 
  Country: None (occurrence: None)
  Receive Date: 20110913
  Receipt Date: 20110830
  Transmission Date: 20111222
  Serious: Yes (Hospitalization, Disabling, Other)
  Sender: FDA-Public Use
  Company Number: 2010SP054733

PATIENT
  Age: 29 Year
  Sex: Female
  Weight: 89.8122 kg

DRUGS (2)
  1. MULTI-VITAMINS [Concomitant]
  2. NUVARING [Suspect]
     Indication: CONTRACEPTION
     Dosage: QM; VAG
     Route: 067
     Dates: start: 20080701, end: 20081028

REACTIONS (21)
  - LOSS OF CONSCIOUSNESS [None]
  - PETIT MAL EPILEPSY [None]
  - TACHYCARDIA [None]
  - DIARRHOEA [None]
  - PULMONARY EMBOLISM [None]
  - STRESS [None]
  - NEPHROLITHIASIS [None]
  - FATIGUE [None]
  - ANXIETY [None]
  - SOCIAL PHOBIA [None]
  - DEEP VEIN THROMBOSIS [None]
  - DEPRESSION [None]
  - FALL [None]
  - FACE INJURY [None]
  - HYPERCOAGULATION [None]
  - NEPHROCALCINOSIS [None]
  - RENAL TUBULAR ACIDOSIS [None]
  - RENAL PAIN [None]
  - VOMITING [None]
  - GAIT DISTURBANCE [None]
  - GASTRITIS [None]
